FAERS Safety Report 9701428 (Version 3)
Quarter: 2015Q3

REPORT INFORMATION
  Report Type: Spontaneous
  Country: US (occurrence: US)
  Receive Date: 20131121
  Receipt Date: 20150803
  Transmission Date: 20151125
  Serious: No
  Sender: FDA-Public Use
  Company Number: US-GILEAD-2008-0016562

PATIENT
  Age: 79 Year
  Sex: Female

DRUGS (15)
  1. TOPROL XL [Concomitant]
     Active Substance: METOPROLOL SUCCINATE
     Route: 048
  2. PLAVIX [Concomitant]
     Active Substance: CLOPIDOGREL BISULFATE
     Route: 048
  3. PROCARDIA [Concomitant]
     Active Substance: NIFEDIPINE
     Route: 048
  4. GLUCOTROL [Concomitant]
     Active Substance: GLIPIZIDE
     Route: 048
  5. VITAMIN E [Concomitant]
     Active Substance: .ALPHA.-TOCOPHEROL
     Route: 048
  6. CENTRUM SILVER [Concomitant]
     Active Substance: VITAMINS
     Route: 048
  7. KLOR-CON [Concomitant]
     Active Substance: POTASSIUM CHLORIDE
     Route: 048
  8. NITRO-DUR [Concomitant]
     Active Substance: NITROGLYCERIN
     Route: 062
  9. CELEBREX [Concomitant]
     Active Substance: CELECOXIB
     Route: 048
  10. DIOVAN [Concomitant]
     Active Substance: VALSARTAN
     Route: 048
  11. BENADRYL [Concomitant]
     Active Substance: DIPHENHYDRAMINE HYDROCHLORIDE
     Route: 048
  12. QUININE HCL [Concomitant]
     Route: 048
  13. VYTORIN [Concomitant]
     Active Substance: EZETIMIBE\SIMVASTATIN
     Route: 048
  14. LETAIRIS [Suspect]
     Active Substance: AMBRISENTAN
     Indication: PULMONARY ARTERIAL HYPERTENSION
     Route: 048
     Dates: start: 20080124, end: 20080423
  15. PREVACID [Concomitant]
     Active Substance: LANSOPRAZOLE
     Route: 048

REACTIONS (5)
  - Decreased appetite [None]
  - Insomnia [None]
  - Nausea [None]
  - Vomiting [None]
  - Asthenia [None]
